FAERS Safety Report 22295497 (Version 2)
Quarter: 2023Q2

REPORT INFORMATION
  Report Type: Spontaneous
  Country: BR (occurrence: BR)
  Receive Date: 20230508
  Receipt Date: 20230522
  Transmission Date: 20230722
  Serious: Yes (Other)
  Sender: FDA-Public Use
  Company Number: BR-PFIZER INC-PV202300079943

PATIENT
  Age: 62 Year
  Sex: Female
  Weight: 69.65 kg

DRUGS (6)
  1. RITUXIMAB [Suspect]
     Active Substance: RITUXIMAB
     Indication: Neuromyelitis optica spectrum disorder
     Dosage: UNK
     Dates: start: 2013
  2. RITUXIMAB [Suspect]
     Active Substance: RITUXIMAB
     Dosage: 1000 MG, 1X/DAY (EVERY 6 MONTHS)
     Route: 042
     Dates: start: 20230502
  3. DIPHENHYDRAMINE [Concomitant]
     Active Substance: DIPHENHYDRAMINE
     Indication: Prophylaxis
     Dosage: ADMINISTER 40 MINUTES BEFORE THE RITUXIMAB INFUSION
     Dates: start: 20230502, end: 20230502
  4. ONDANSETRON [Concomitant]
     Active Substance: ONDANSETRON
     Dosage: ADMINISTER 30 MINUTES BEFORE THE RITUXIMAB INFUSION
     Dates: start: 20230502, end: 20230502
  5. ACETAMINOPHEN [Concomitant]
     Active Substance: ACETAMINOPHEN
     Dosage: ADMINISTER 1 HOUR BEFORE THE RITUXIMAB INFUSION
     Route: 048
     Dates: start: 20230502, end: 20230502
  6. HYDROCORTISONE [Concomitant]
     Active Substance: HYDROCORTISONE
     Dosage: ADMINISTER 30 MINUTES OF THE RITUXIMAB INFUSION
     Dates: start: 20230502, end: 20230502

REACTIONS (6)
  - Headache [Recovered/Resolved]
  - Abdominal pain [Recovered/Resolved]
  - Diarrhoea [Recovered/Resolved]
  - Chills [Recovered/Resolved]
  - Micturition urgency [Recovered/Resolved]
  - Off label use [Unknown]

NARRATIVE: CASE EVENT DATE: 20230502
